FAERS Safety Report 5587369-X (Version None)
Quarter: 2007Q4

REPORT INFORMATION
  Report Type: 
  Country: None (occurrence: None)
  Receive Date: 20071205
  Receipt Date: 20070205
  Transmission Date: 20080405
  Serious: Yes (Other)
  Sender: FDA-Public Use
  Company Number: HQWYE006108FEB07

PATIENT
  Age: 66 Year
  Sex: Female
  Weight: 90.8 kg

DRUGS (3)
  1. EFFEXOR XR [Suspect]
     Indication: DEPRESSION
     Dosage: 37.5 MG 1X PER 1 DAY, ORAL
     Route: 048
     Dates: start: 20070126
  2. SYNTHROID (LEVOTHYOXINE SODIUM) [Concomitant]
  3. ACETAMINOPHEN [Concomitant]

REACTIONS (1)
  - SKIN ODOUR ABNORMAL [None]
